FAERS Safety Report 7918861-8 (Version None)
Quarter: 2011Q4

REPORT INFORMATION
  Report Type: 
  Country: None (occurrence: None)
  Receive Date: 20111116
  Receipt Date: 20110524
  Transmission Date: 20120403
  Serious: Yes (Death)
  Sender: FDA-Public Use
  Company Number: IE-PFIZER INC-2005060385

PATIENT
  Age: 71 Year
  Sex: Female

DRUGS (5)
  1. HYDROCORTISONE [Concomitant]
     Dosage: 10 MG, 2X/DAY
     Dates: start: 19990818, end: 20050321
  2. SOMATROPIN [Suspect]
     Indication: HYPOPITUITARISM
     Dosage: 0.2 MG, 1X/DAY
     Route: 058
     Dates: start: 20010905, end: 20050201
  3. PERINDOPRIL ERBUMINE [Concomitant]
     Dosage: 4 MG, 1X/DAY
     Dates: start: 20031105, end: 20050321
  4. ASPIRIN [Concomitant]
     Dosage: 75 MG, 1X/DAY
  5. DESMOPRESSIN ACETATE [Concomitant]
     Dosage: 0.2MG MORNING AND 0.4MG AFTERNOON
     Route: 065
     Dates: start: 20000503, end: 20050321

REACTIONS (1)
  - MYOCARDIAL INFARCTION [None]
